FAERS Safety Report 18256023 (Version 8)
Quarter: 2020Q4

REPORT INFORMATION
  Report Type: Spontaneous
  Country: US (occurrence: US)
  Receive Date: 20200911
  Receipt Date: 20201211
  Transmission Date: 20210113
  Serious: Yes (Other)
  Sender: FDA-Public Use
  Company Number: US-SA-2020SA243215

PATIENT

DRUGS (1)
  1. LANTUS [Suspect]
     Active Substance: INSULIN GLARGINE
     Indication: TYPE 2 DIABETES MELLITUS
     Dosage: 40 IU, QD AT MORNING
     Route: 065
     Dates: start: 2019

REACTIONS (7)
  - Presyncope [Unknown]
  - Malaise [Unknown]
  - Dry skin [Unknown]
  - Facial paralysis [Unknown]
  - Asthenia [Unknown]
  - Pain in extremity [Unknown]
  - Product dose omission issue [Unknown]
